FAERS Safety Report 17730472 (Version 1)
Quarter: 2020Q2

REPORT INFORMATION
  Report Type: Spontaneous
  Country: US (occurrence: US)
  Receive Date: 20200430
  Receipt Date: 20200430
  Transmission Date: 20200714
  Serious: Yes (Death, Life-Threatening, Hospitalization)
  Sender: FDA-Public Use
  Company Number: US-TEVA-2020-US-1227999

PATIENT
  Age: 6 Year
  Sex: Male

DRUGS (22)
  1. PREDNISONE. [Suspect]
     Active Substance: PREDNISONE
     Indication: APLASTIC ANAEMIA
  2. CEFEPIME [Concomitant]
     Active Substance: CEFEPIME HYDROCHLORIDE
     Indication: ANTIBIOTIC PROPHYLAXIS
     Route: 065
  3. SULFAMETHOXAZOLE/TRIMETHOPRIM [Concomitant]
     Active Substance: SULFAMETHOXAZOLE\TRIMETHOPRIM
     Indication: PROPHYLAXIS
     Route: 065
  4. MICAFUNGIN. [Concomitant]
     Active Substance: MICAFUNGIN SODIUM
     Route: 065
  5. TACROLIMUS. [Suspect]
     Active Substance: TACROLIMUS
     Indication: PROPHYLAXIS AGAINST GRAFT VERSUS HOST DISEASE
  6. HORSE ANTITHYMOCYTE GLOBULIN [Suspect]
     Active Substance: EQUINE THYMOCYTE IMMUNE GLOBULIN
     Indication: APLASTIC ANAEMIA
     Route: 065
     Dates: start: 200205
  7. RABIT ANTITHYMOCYTE GLOBULIN [Suspect]
     Active Substance: LAPINE T-LYMPHOCYTE IMMUNE GLOBULIN
     Indication: BONE MARROW CONDITIONING REGIMEN
  8. CYCLOPHOSPHAMIDE. [Suspect]
     Active Substance: CYCLOPHOSPHAMIDE
     Indication: BONE MARROW CONDITIONING REGIMEN
     Dosage: 1.2 G/M2
     Route: 065
  9. BASILIXIMAB [Suspect]
     Active Substance: BASILIXIMAB
     Indication: IMMUNOSUPPRESSANT DRUG THERAPY
     Route: 065
  10. LANSOPRAZOLE. [Concomitant]
     Active Substance: LANSOPRAZOLE
     Route: 065
  11. TACROLIMUS. [Suspect]
     Active Substance: TACROLIMUS
     Indication: IMMUNOSUPPRESSANT DRUG THERAPY
     Route: 065
  12. PENTAMIDINE [Concomitant]
     Active Substance: PENTAMIDINE
     Indication: ANTIBIOTIC PROPHYLAXIS
     Route: 065
  13. FLUDARABINE [Suspect]
     Active Substance: FLUDARABINE PHOSPHATE
     Indication: BONE MARROW CONDITIONING REGIMEN
     Route: 065
  14. PREDNISONE. [Suspect]
     Active Substance: PREDNISONE
     Indication: IMMUNOSUPPRESSANT DRUG THERAPY
     Route: 065
  15. RABIT ANTITHYMOCYTE GLOBULIN [Suspect]
     Active Substance: LAPINE T-LYMPHOCYTE IMMUNE GLOBULIN
     Indication: APLASTIC ANAEMIA
     Route: 065
     Dates: start: 200605
  16. URSODIOL. [Concomitant]
     Active Substance: URSODIOL
     Route: 065
  17. CLINDAMYCIN. [Concomitant]
     Active Substance: CLINDAMYCIN
     Indication: ANTIBIOTIC PROPHYLAXIS
     Route: 065
  18. AMLODIPINE [Concomitant]
     Active Substance: AMLODIPINE BESYLATE
     Route: 065
  19. METHOTREXATE. [Suspect]
     Active Substance: METHOTREXATE
     Indication: PROPHYLAXIS AGAINST GRAFT VERSUS HOST DISEASE
     Route: 065
  20. DACLIZUMAB [Suspect]
     Active Substance: DACLIZUMAB
     Indication: APLASTIC ANAEMIA
     Route: 065
  21. GANCICLOVIR. [Concomitant]
     Active Substance: GANCICLOVIR
     Indication: ANTIVIRAL PROPHYLAXIS
     Route: 065
  22. VALGANCICLOVIR. [Concomitant]
     Active Substance: VALGANCICLOVIR
     Indication: ANTIVIRAL PROPHYLAXIS
     Route: 065

REACTIONS (9)
  - Acute kidney injury [Recovering/Resolving]
  - Adenocarcinoma of colon [Fatal]
  - Adenovirus infection [Recovering/Resolving]
  - Epstein-Barr virus infection reactivation [Recovered/Resolved]
  - Hypertension [Unknown]
  - Hepatitis infectious mononucleosis [Recovered/Resolved]
  - Viral load increased [Recovered/Resolved]
  - Cystitis haemorrhagic [Unknown]
  - End stage renal disease [Recovered/Resolved]
